FAERS Safety Report 9838605 (Version 1)
Quarter: 2014Q1

REPORT INFORMATION
  Report Type: Spontaneous
  Country: FR (occurrence: None)
  Receive Date: 20140116
  Receipt Date: 20140116
  Transmission Date: 20141002
  Serious: Yes (Other)
  Sender: FDA-Public Use
  Company Number: DSM-2014-00027

PATIENT
  Age: 79 Year
  Sex: Male

DRUGS (1)
  1. ALTEIS DUO [Suspect]
     Indication: HYPERTENSION
     Dosage: ORAL
     Route: 048

REACTIONS (5)
  - Schnitzler^s syndrome [None]
  - Cough [None]
  - Microcytic anaemia [None]
  - Leukocytosis [None]
  - Thrombocytosis [None]
